FAERS Safety Report 18474659 (Version 3)
Quarter: 2020Q4

REPORT INFORMATION
  Report Type: Spontaneous
  Country: US (occurrence: US)
  Receive Date: 20201106
  Receipt Date: 20201222
  Transmission Date: 20210114
  Serious: Yes (Other)
  Sender: FDA-Public Use
  Company Number: US-BAYER-2020-235180

PATIENT
  Age: 33 Year
  Sex: Male

DRUGS (13)
  1. KOGENATE FS [Suspect]
     Active Substance: ANTIHEMOPHILIC FACTOR, HUMAN RECOMBINANT
     Dosage: 6750 U
     Route: 042
  2. KOGENATE FS [Suspect]
     Active Substance: ANTIHEMOPHILIC FACTOR, HUMAN RECOMBINANT
     Dosage: FREQUENTLY INJECTS TO TREAT JOINT PAINS AND SOFT TISSUE BLEEDS
     Route: 042
  3. KOGENATE FS [Suspect]
     Active Substance: ANTIHEMOPHILIC FACTOR, HUMAN RECOMBINANT
     Dosage: 1 DF, ONCE, TO TREAT LEFT ANKLE BLEED, SINGLE DOSE
     Dates: start: 20201106, end: 20201106
  4. KOGENATE FS [Suspect]
     Active Substance: ANTIHEMOPHILIC FACTOR, HUMAN RECOMBINANT
     Dosage: 1 DF, ONCE (TO TREAT RIGHT WRIST PAIN)
     Route: 042
     Dates: start: 20201022, end: 20201022
  5. KOGENATE FS [Suspect]
     Active Substance: ANTIHEMOPHILIC FACTOR, HUMAN RECOMBINANT
     Dosage: 6750 U
     Route: 042
  6. KOGENATE FS [Suspect]
     Active Substance: ANTIHEMOPHILIC FACTOR, HUMAN RECOMBINANT
     Dosage: 1 DF, ONCE (TO TREAT LEFT WRIST PAIN)
     Route: 042
     Dates: start: 20201019, end: 20201019
  7. KOGENATE FS [Suspect]
     Active Substance: ANTIHEMOPHILIC FACTOR, HUMAN RECOMBINANT
     Dosage: 1 DF, ONCE (TO TREAT BRUISING ON LEFT FOOT)
     Route: 042
     Dates: start: 20201025, end: 20201025
  8. KOGENATE FS [Suspect]
     Active Substance: ANTIHEMOPHILIC FACTOR, HUMAN RECOMBINANT
     Dosage: 1 DF TO TREAT BRUISE ON LEFT HIP
     Dates: start: 20201121, end: 20201121
  9. KOGENATE FS [Suspect]
     Active Substance: ANTIHEMOPHILIC FACTOR, HUMAN RECOMBINANT
     Dosage: USED DOUBLE DOSE TO TREAT RIGHT KNEE BLEED
     Route: 042
     Dates: start: 20201216, end: 20201216
  10. KOGENATE FS [Suspect]
     Active Substance: ANTIHEMOPHILIC FACTOR, HUMAN RECOMBINANT
     Dosage: 1 DF, ONCE ( TO TREAT RT THIGH CONTUSION)DOUBLE DOSE.
  11. KOGENATE FS [Suspect]
     Active Substance: ANTIHEMOPHILIC FACTOR, HUMAN RECOMBINANT
     Dosage: 1 DF, TO TREAT LEFT WRIST TARGET JOINT BLEED,DOUBLE DOSE.
  12. KOGENATE FS [Suspect]
     Active Substance: ANTIHEMOPHILIC FACTOR, HUMAN RECOMBINANT
     Dosage: 1 UNK TO TREAT LEFT ANKLE BLEED, DOUBLE DOSE.
     Dates: start: 20201105, end: 20201105
  13. KOGENATE FS [Suspect]
     Active Substance: ANTIHEMOPHILIC FACTOR, HUMAN RECOMBINANT
     Dosage: 3 DF, TO TREAT RIGHT HAND BLEED
     Route: 042
     Dates: start: 20201205, end: 20201205

REACTIONS (11)
  - Haemarthrosis [None]
  - Haemorrhage [Recovered/Resolved]
  - Arthralgia [None]
  - Soft tissue haemorrhage [None]
  - Contusion [None]
  - Arthralgia [None]
  - Contusion [Recovered/Resolved]
  - Haemarthrosis [Recovered/Resolved]
  - Contusion [None]
  - Haemorrhage [Recovered/Resolved]
  - Arthralgia [None]

NARRATIVE: CASE EVENT DATE: 20201019
